FAERS Safety Report 14499085 (Version 1)
Quarter: 2018Q1

REPORT INFORMATION
  Report Type: Spontaneous
  Country: GB (occurrence: GB)
  Receive Date: 20180207
  Receipt Date: 20180207
  Transmission Date: 20180509
  Serious: Yes (Other)
  Sender: FDA-Public Use
  Company Number: PHHY2018GB018570

PATIENT
  Age: 48 Year
  Sex: Female
  Weight: 86.63 kg

DRUGS (1)
  1. METRONIDAZOLE. [Suspect]
     Active Substance: METRONIDAZOLE
     Indication: TOOTH INFECTION
     Route: 048

REACTIONS (2)
  - Rash [Recovered/Resolved]
  - Headache [Recovered/Resolved]
